FAERS Safety Report 7744254-2 (Version None)
Quarter: 2011Q3

REPORT INFORMATION
  Report Type: 
  Country: None (occurrence: None)
  Receive Date: 20110912
  Receipt Date: 20110902
  Transmission Date: 20111222
  Serious: Yes (Other)
  Sender: FDA-Public Use
  Company Number: PHHY2011BR79996

PATIENT
  Sex: Female

DRUGS (3)
  1. VITAMIN A AND D [Concomitant]
  2. CALCIUM CARBONATE [Suspect]
  3. ALENDRONATE SODIUM [Suspect]

REACTIONS (5)
  - DIARRHOEA [None]
  - BONE DENSITY DECREASED [None]
  - GASTRIC POLYPS [None]
  - MUSCULOSKELETAL PAIN [None]
  - PAIN [None]
